FAERS Safety Report 6355346-7 (Version None)
Quarter: 2009Q3

REPORT INFORMATION
  Report Type: 
  Country: None (occurrence: None)
  Receive Date: 20090817
  Receipt Date: 20080624
  Transmission Date: 20100115
  Serious: No
  Sender: FDA-Public Use
  Company Number: 20084992

PATIENT
  Sex: Female

DRUGS (10)
  1. LIORESAL [Suspect]
     Indication: MUSCLE SPASTICITY
     Dosage: MCG, DAILY, INTRATHECAL
     Route: 037
  2. TIZANIDINE HCL [Concomitant]
  3. BACLOFEN [Concomitant]
  4. SYNTHROID [Concomitant]
  5. CADUET [Concomitant]
  6. LEXAPRO [Concomitant]
  7. TEGRETOL [Concomitant]
  8. LABETALOL HCL [Concomitant]
  9. NORVASC [Concomitant]
  10. LAMICTAL [Concomitant]

REACTIONS (4)
  - AMNESIA [None]
  - ASTHENIA [None]
  - CONVULSION [None]
  - DEPRESSION [None]
